FAERS Safety Report 8239678-3 (Version None)
Quarter: 2012Q1

REPORT INFORMATION
  Report Type: 
  Country: None (occurrence: None)
  Receive Date: 20120328
  Receipt Date: 20120320
  Transmission Date: 20120608
  Serious: Yes (Death)
  Sender: FDA-Public Use
  Company Number: US-UCBSA-053755

PATIENT
  Age: 54 Year
  Sex: Male
  Weight: 114.75 kg

DRUGS (2)
  1. LIALDA [Concomitant]
     Indication: COLITIS ULCERATIVE
     Dosage: 4 TABLETS W/A MEAL ONCE A DAY
     Route: 048
     Dates: start: 20110707
  2. CIMZIA [Suspect]
     Indication: CROHN'S DISEASE
     Route: 058
     Dates: start: 20110225

REACTIONS (1)
  - COMPLETED SUICIDE [None]
